FAERS Safety Report 21464412 (Version 2)
Quarter: 2022Q4

REPORT INFORMATION
  Report Type: Spontaneous
  Country: IT (occurrence: IT)
  Receive Date: 20221017
  Receipt Date: 20221101
  Transmission Date: 20230113
  Serious: Yes (Life-Threatening, Other)
  Sender: FDA-Public Use
  Company Number: IT-drreddys-LIT/ITL/22/0154924

PATIENT
  Age: 1 Month
  Sex: Male

DRUGS (6)
  1. AZACITIDINE [Suspect]
     Active Substance: AZACITIDINE
     Indication: Acute lymphocytic leukaemia recurrent
     Dosage: EVERY 21 DAYS FOR 4 CYCLES
  2. AZACITIDINE [Suspect]
     Active Substance: AZACITIDINE
     Dosage: EVERY 21 DAYS FOR 4 CYCLES
  3. AZACITIDINE [Suspect]
     Active Substance: AZACITIDINE
     Dosage: EVERY 21 DAYS FOR 4 CYCLES
  4. AZACITIDINE [Suspect]
     Active Substance: AZACITIDINE
     Dosage: EVERY 21 DAYS FOR 4 CYCLES
  5. AZACITIDINE [Suspect]
     Active Substance: AZACITIDINE
     Dosage: 3 COURSES OF AZACITIDINE 40 MG/M2 AND MAINTENANCE FOR 5 DAYS, EVERY 21 DAYS.
  6. PREDNISONE [Suspect]
     Active Substance: PREDNISONE
     Indication: Acute lymphocytic leukaemia recurrent
     Dosage: PREDNISONE WAS GIVEN WITH EACH CYCLE, (1 MG/M2, CYCLIC)

REACTIONS (4)
  - Cytopenia [Recovered/Resolved]
  - Pneumonia [Recovered/Resolved]
  - Product use issue [Recovered/Resolved]
  - Product use in unapproved indication [Recovered/Resolved]
